FAERS Safety Report 9602825 (Version 1)
Quarter: 2013Q4

REPORT INFORMATION
  Report Type: Spontaneous
  Country: US (occurrence: None)
  Receive Date: 20131003
  Receipt Date: 20131003
  Transmission Date: 20140711
  Serious: Yes (Other)
  Sender: FDA-Public Use
  Company Number: SP07070

PATIENT
  Age: 50 Year
  Sex: Male
  Weight: 104.33 kg

DRUGS (1)
  1. MOVIPREP (SOLUTION) [Suspect]
     Indication: BOWEL PREPARATION
     Dosage: 8 OZ
     Route: 048
     Dates: start: 20130926, end: 20130926

REACTIONS (6)
  - Pruritus [None]
  - Urticaria [None]
  - Hyperhidrosis [None]
  - Throat tightness [None]
  - Tremor [None]
  - Vomiting [None]
